FAERS Safety Report 4853248-6 (Version None)
Quarter: 2005Q4

REPORT INFORMATION
  Report Type: 
  Country: None (occurrence: None)
  Receive Date: 20051212
  Receipt Date: 20051202
  Transmission Date: 20060501
  Serious: Yes (Hospitalization)
  Sender: FDA-Public Use
  Company Number: 2005-135319-NL

PATIENT
  Age: 83 Year
  Sex: Female

DRUGS (5)
  1. MIRTAZAPINE [Suspect]
     Dosage: 1 DF
     Route: 048
     Dates: end: 20050429
  2. RIVASTIGMINE TARTRATE [Suspect]
     Dosage: 12 MG
     Route: 048
     Dates: start: 19990101, end: 20050429
  3. MEMANINE [Suspect]
     Dosage: 10 MG
     Route: 048
     Dates: end: 20050429
  4. DIPYRIDAMOLE [Suspect]
     Dosage: 75 MG
     Route: 048
  5. PAROXETINE HCL [Suspect]
     Dosage: 20 MG

REACTIONS (3)
  - CONFUSIONAL STATE [None]
  - FALL [None]
  - ORTHOSTATIC HYPOTENSION [None]
